FAERS Safety Report 8202851-4 (Version None)
Quarter: 2012Q1

REPORT INFORMATION
  Report Type: 
  Country: None (occurrence: None)
  Receive Date: 20120312
  Receipt Date: 20120312
  Transmission Date: 20120608
  Serious: Yes (Other)
  Sender: FDA-Public Use
  Company Number: None

PATIENT
  Age: 53 Year
  Sex: Female

DRUGS (2)
  1. CIMZIA [Suspect]
     Indication: CROHN'S DISEASE
     Dosage: 400.0 MG
     Route: 058
     Dates: start: 20120117, end: 20120301
  2. CIMZIA [Concomitant]
     Dosage: 400MG
     Route: 058
     Dates: start: 20120117, end: 20120301

REACTIONS (1)
  - BACTERIAL INFECTION [None]
